FAERS Safety Report 7216085-3 (Version None)
Quarter: 2011Q1

REPORT INFORMATION
  Report Type: 
  Country: None (occurrence: None)
  Receive Date: 20110107
  Receipt Date: 20110105
  Transmission Date: 20110831
  Serious: Yes (Life-Threatening, Other)
  Sender: FDA-Public Use
  Company Number: JP-BRISTOL-MYERS SQUIBB COMPANY-14697452

PATIENT
  Age: 49 Year
  Sex: Male

DRUGS (8)
  1. NORVIR [Suspect]
     Indication: HIV INFECTION
     Dosage: NORVIR SOFT
     Route: 048
     Dates: end: 20090406
  2. GEMZAR [Suspect]
     Indication: LUNG CANCER METASTATIC
     Dosage: RECEIVED 4 COURSE
     Dates: start: 20080408, end: 20080709
  3. REYATAZ [Suspect]
     Indication: HIV INFECTION
     Route: 048
     Dates: end: 20090406
  4. CISPLATIN [Suspect]
     Indication: LUNG CANCER METASTATIC
     Dosage: RECEIVED 4 COURSE
     Dates: start: 20080408, end: 20080709
  5. EPIVIR [Suspect]
     Indication: HIV INFECTION
     Route: 048
     Dates: end: 20090406
  6. CISPLATIN [Suspect]
     Indication: LUNG ADENOCARCINOMA
     Dosage: RECEIVED 4 COURSE
     Dates: start: 20080408, end: 20080709
  7. TENOFOVIR DISOPROXIL FUMARATE [Suspect]
     Indication: HIV INFECTION
     Route: 048
     Dates: end: 20090406
  8. GEMZAR [Suspect]
     Indication: LUNG ADENOCARCINOMA
     Dosage: RECEIVED 4 COURSE
     Dates: start: 20080408, end: 20080709

REACTIONS (6)
  - SUBDURAL HAEMATOMA [None]
  - DECREASED APPETITE [None]
  - HAEMATOTOXICITY [None]
  - CEREBRAL HAEMORRHAGE [None]
  - PLATELET TOXICITY [None]
  - LUNG NEOPLASM MALIGNANT [None]
